FAERS Safety Report 9786479 (Version 1)
Quarter: 2013Q4

REPORT INFORMATION
  Report Type: Spontaneous
  Country: US (occurrence: None)
  Receive Date: 20131226
  Receipt Date: 20131226
  Transmission Date: 20140711
  Serious: No
  Sender: FDA-Public Use
  Company Number: 3011632-2013-00003

PATIENT
  Sex: 0

DRUGS (4)
  1. 60:60 RINSE PART A MINT [Suspect]
     Indication: DENTAL CARIES
     Dosage: 15ML/6-MO./BUCCAL
     Dates: start: 20131210
  2. 60:60 RINSE PART A MINT [Suspect]
     Indication: DENTAL DISORDER PROPHYLAXIS
     Dosage: 15ML/6-MO./BUCCAL
     Dates: start: 20131210
  3. 60:60 RINSE PART B MINT [Suspect]
     Indication: DENTAL CARIES
     Dosage: 15 ML/6-MO./BUCCAL
     Dates: start: 20131210
  4. 60:60 RINSE PART B MINT [Suspect]
     Indication: DENTAL DISORDER PROPHYLAXIS
     Dosage: 15 ML/6-MO./BUCCAL
     Dates: start: 20131210

REACTIONS (1)
  - Lip swelling [None]
